FAERS Safety Report 14206370 (Version 1)
Quarter: 2017Q4

REPORT INFORMATION
  Report Type: Spontaneous
  Country: US (occurrence: US)
  Receive Date: 20171120
  Receipt Date: 20171120
  Transmission Date: 20180321
  Serious: Yes (Death, Other)
  Sender: FDA-Public Use
  Company Number: US-CELGENEUS-USA-20171105367

PATIENT

DRUGS (2)
  1. ROMIDEPSIN. [Suspect]
     Active Substance: ROMIDEPSIN
     Indication: T-CELL LYMPHOMA REFRACTORY
     Dosage: 10 MILLIGRAM/SQ. METER
     Route: 065
  2. DUVELISIB [Suspect]
     Active Substance: DUVELISIB
     Indication: T-CELL LYMPHOMA REFRACTORY
     Route: 048

REACTIONS (4)
  - Pulmonary alveolar haemorrhage [Fatal]
  - Fatigue [Unknown]
  - Neutropenia [Unknown]
  - Aspartate aminotransferase increased [Unknown]
